FAERS Safety Report 6183822-9 (Version None)
Quarter: 2009Q2

REPORT INFORMATION
  Report Type: 
  Country: None (occurrence: None)
  Receive Date: 20090506
  Receipt Date: 20090506
  Transmission Date: 20091009
  Serious: Yes (Other)
  Sender: FDA-Public Use
  Company Number: None

PATIENT
  Sex: Female
  Weight: 82.5547 kg

DRUGS (1)
  1. INDERAL LA [Suspect]
     Indication: HYPERTENSION
     Dosage: 120 MG 1 QD
     Dates: start: 20080101

REACTIONS (1)
  - DYSPNOEA [None]
